FAERS Safety Report 4417699-6 (Version None)
Quarter: 2004Q2

REPORT INFORMATION
  Report Type: 
  Country: None (occurrence: None)
  Receive Date: 20040621
  Receipt Date: 20040406
  Transmission Date: 20050107
  Serious: Yes (Other)
  Sender: FDA-Public Use
  Company Number: PHEH2004US02663

PATIENT
  Age: 77 Year
  Sex: Male

DRUGS (11)
  1. ZOMETA [Suspect]
     Indication: PROSTATE CANCER METASTATIC
     Dosage: 4 MG MONTHLY, INTRAVENOUS
     Route: 042
     Dates: start: 20021017, end: 20040226
  2. AMBIEN [Concomitant]
  3. PERCOCET [Concomitant]
  4. REMERON [Concomitant]
  5. CARDURA [Concomitant]
  6. HYGROTON [Concomitant]
  7. ZYLOPRIM [Concomitant]
  8. NOVO-GLYBURIDE [Concomitant]
  9. ASPIRIN [Concomitant]
  10. HEMOCYTE TABLET [Concomitant]
  11. PROCRIT (ERYTHROPOIETIN) [Concomitant]

REACTIONS (1)
  - BLOOD CREATININE INCREASED [None]
